FAERS Safety Report 6198065-2 (Version None)
Quarter: 2009Q2

REPORT INFORMATION
  Report Type: 
  Country: None (occurrence: None)
  Receive Date: 20090521
  Receipt Date: 20090511
  Transmission Date: 20091009
  Serious: Yes (Hospitalization)
  Sender: FDA-Public Use
  Company Number: AT-ELI_LILLY_AND_COMPANY-AT200905001790

PATIENT
  Age: 76 Year
  Sex: Male
  Weight: 90 kg

DRUGS (6)
  1. BYETTA [Suspect]
     Indication: TYPE 2 DIABETES MELLITUS
     Dosage: 10 UG, 2/D ( EACH MORNINGA ND EACH EVENING)
     Route: 058
  2. ENALAPRIL MALEATE [Concomitant]
     Dosage: 0.5 D/F, DAILY (1/D)
     Route: 065
  3. NULYTELY [Concomitant]
     Dosage: UNK, UNKNOWN
     Route: 065
  4. NORVASC [Concomitant]
     Dosage: 5 MG, UNKNOWN
     Route: 065
  5. PANTOLOC                           /01263201/ [Concomitant]
     Dosage: 20 MG, UNKNOWN
     Route: 065
  6. ASPIRIN [Concomitant]
     Dosage: 100 MG, UNKNOWN
     Route: 065

REACTIONS (1)
  - HEPATOTOXICITY [None]
